FAERS Safety Report 5351034-4 (Version None)
Quarter: 2007Q2

REPORT INFORMATION
  Report Type: 
  Country: None (occurrence: None)
  Receive Date: 20070606
  Receipt Date: 20070523
  Transmission Date: 20071010
  Serious: Yes (Hospitalization)
  Sender: FDA-Public Use
  Company Number: 2007000993

PATIENT
  Age: 56 Year
  Sex: Female

DRUGS (2)
  1. ERLOTINIB (TABLET) (ERLOTINIB HCL) [Suspect]
     Indication: BREAST CANCER METASTATIC
     Dosage: 75 MG (QD); ORAL
     Route: 048
     Dates: start: 20061206, end: 20061206
  2. VINFLUNINE (INJECTION FOR INFUSION) [Suspect]
     Indication: BREAST CANCER METASTATIC
     Dosage: 433 MG, INTRAVENOUS
     Route: 042
     Dates: start: 20061205, end: 20061205

REACTIONS (7)
  - CHILLS [None]
  - GALLBLADDER DISORDER [None]
  - NAUSEA [None]
  - NEUTROPENIA [None]
  - PLATELET COUNT DECREASED [None]
  - VOMITING [None]
  - WHITE BLOOD CELL COUNT DECREASED [None]
